FAERS Safety Report 9815646 (Version 2)
Quarter: 2014Q1

REPORT INFORMATION
  Report Type: Spontaneous
  Country: IN (occurrence: IN)
  Receive Date: 20140114
  Receipt Date: 20140127
  Transmission Date: 20141002
  Serious: Yes (Other)
  Sender: FDA-Public Use
  Company Number: PHHY2014IN002657

PATIENT
  Sex: Male

DRUGS (1)
  1. GENTEAL [Suspect]
     Dosage: UNK
     Route: 047

REACTIONS (2)
  - Eye irritation [Recovered/Resolved]
  - Blindness transient [Recovered/Resolved]
